FAERS Safety Report 6959102-8 (Version None)
Quarter: 2010Q3

REPORT INFORMATION
  Report Type: 
  Country: None (occurrence: None)
  Receive Date: 20100831
  Receipt Date: 20100818
  Transmission Date: 20110219
  Serious: Yes (Other)
  Sender: FDA-Public Use
  Company Number: ES-ELI_LILLY_AND_COMPANY-ES201008005705

PATIENT
  Sex: Male
  Weight: 50.8 kg

DRUGS (6)
  1. FORTEO [Suspect]
     Indication: OSTEOPOROSIS
     Dosage: 20 UG, DAILY (1/D)
     Route: 058
     Dates: start: 20081201, end: 20100501
  2. CALCIUM SANDOZ [Concomitant]
     Indication: OSTEOPOROSIS
     Dosage: 1 UNK, DAILY (1/D)
     Route: 048
     Dates: start: 20081201
  3. INSULINE ACTRAPID [Concomitant]
     Indication: DIABETES MELLITUS
     Dosage: 18 UL, DAILY (1/D)
     Route: 058
  4. INSULINE ACTRAPID [Concomitant]
     Dosage: 16 UL, DAILY (1/D)
     Route: 058
  5. INSULINE ACTRAPID [Concomitant]
     Dosage: 22 UL, DAILY (1/D)
     Route: 058
  6. DEZACOR [Concomitant]
     Indication: CHRONIC OBSTRUCTIVE PULMONARY DISEASE
     Dosage: 1 UNK, 2/D
     Route: 048

REACTIONS (2)
  - DIABETIC NEPHROPATHY [None]
  - RENAL FAILURE [None]
